FAERS Safety Report 4868641-5 (Version None)
Quarter: 2005Q4

REPORT INFORMATION
  Report Type: 
  Country: None (occurrence: None)
  Receive Date: 20051229
  Receipt Date: 20051220
  Transmission Date: 20060501
  Serious: Yes (Hospitalization)
  Sender: FDA-Public Use
  Company Number: FR-BRISTOL-MYERS SQUIBB COMPANY-13225438

PATIENT
  Age: 82 Year
  Sex: Female

DRUGS (11)
  1. ELISOR TABS 20 MG [Suspect]
     Indication: HYPERCHOLESTEROLAEMIA
     Route: 048
  2. KARDEGIC [Suspect]
     Dates: end: 20050223
  3. LOXEN LP [Suspect]
     Indication: ESSENTIAL HYPERTENSION
     Dates: end: 20040928
  4. APROVEL [Concomitant]
     Dates: start: 20041019
  5. CYCLO 3 [Concomitant]
     Dates: start: 20031127, end: 20050223
  6. LANZOR [Concomitant]
     Dates: start: 20040928, end: 20050223
  7. PRACTAZIN [Concomitant]
     Dates: start: 20041105, end: 20051017
  8. DOLIPRANE [Concomitant]
     Dates: start: 20040928, end: 20041105
  9. ASASANTINE [Concomitant]
     Dates: start: 20041202
  10. OGAST [Concomitant]
     Dates: start: 20030101, end: 20040928
  11. ARIMIDEX [Concomitant]
     Dates: start: 20050901

REACTIONS (3)
  - ECZEMA [None]
  - PRURITUS [None]
  - RENAL FAILURE [None]
